FAERS Safety Report 6581488-7 (Version None)
Quarter: 2010Q1

REPORT INFORMATION
  Report Type: 
  Country: None (occurrence: None)
  Receive Date: 20100215
  Receipt Date: 20100205
  Transmission Date: 20100710
  Serious: Yes (Other)
  Sender: FDA-Public Use
  Company Number: B0629423A

PATIENT
  Age: 57 Year
  Sex: Female

DRUGS (2)
  1. VALTREX [Suspect]
     Indication: HERPES ZOSTER
     Dosage: 1500MG TWICE PER DAY
     Route: 048
     Dates: start: 20080908, end: 20080909
  2. ZOVIRAX [Suspect]
     Indication: HERPES ZOSTER
     Dosage: 250MG PER DAY
     Route: 042
     Dates: start: 20080908, end: 20080909

REACTIONS (7)
  - AGGRESSION [None]
  - CRYING [None]
  - DIZZINESS [None]
  - ENCEPHALOPATHY [None]
  - HEADACHE [None]
  - INCOHERENT [None]
  - LOGORRHOEA [None]
